FAERS Safety Report 19360415 (Version 2)
Quarter: 2021Q3

REPORT INFORMATION
  Report Type: Spontaneous
  Country: DE (occurrence: DE)
  Receive Date: 20210601
  Receipt Date: 20210709
  Transmission Date: 20211014
  Serious: Yes (Other)
  Sender: FDA-Public Use
  Company Number: DE-TEVA-2021-DE-1919295

PATIENT
  Age: 64 Year

DRUGS (1)
  1. FOSAMAX [Suspect]
     Active Substance: ALENDRONATE SODIUM
     Indication: BONE MARROW OEDEMA
     Route: 065

REACTIONS (3)
  - Drug ineffective [Unknown]
  - Stress fracture [Recovered/Resolved]
  - Disease progression [Unknown]
